FAERS Safety Report 6820753-2 (Version None)
Quarter: 2010Q3

REPORT INFORMATION
  Report Type: 
  Country: None (occurrence: None)
  Receive Date: 20100707
  Receipt Date: 20070521
  Transmission Date: 20110219
  Serious: No
  Sender: FDA-Public Use
  Company Number: US-PFIZER INC-2007040705

PATIENT
  Sex: Female

DRUGS (1)
  1. SERTRALINE [Suspect]

REACTIONS (4)
  - ANXIETY [None]
  - DEPRESSION [None]
  - PANIC ATTACK [None]
  - WITHDRAWAL SYNDROME [None]
